FAERS Safety Report 17009373 (Version 1)
Quarter: 2019Q4

REPORT INFORMATION
  Report Type: Spontaneous
  Country: US (occurrence: US)
  Receive Date: 20191108
  Receipt Date: 20191108
  Transmission Date: 20200122
  Serious: No
  Sender: FDA-Public Use
  Company Number: US-ELI_LILLY_AND_COMPANY-US201910005272

PATIENT
  Age: 65 Year
  Sex: Female

DRUGS (2)
  1. EMGALITY [Suspect]
     Active Substance: GALCANEZUMAB-GNLM
     Indication: MIGRAINE
     Dosage: UNK, UNKNOWN
     Route: 065
     Dates: start: 201907
  2. FLU [Concomitant]
     Active Substance: INFLUENZA VIRUS VACCINE

REACTIONS (6)
  - Feeling abnormal [Not Recovered/Not Resolved]
  - Headache [Not Recovered/Not Resolved]
  - Malaise [Recovering/Resolving]
  - Fatigue [Not Recovered/Not Resolved]
  - Injection site haemorrhage [Unknown]
  - Product dose omission [Unknown]
